FAERS Safety Report 9550002 (Version 3)
Quarter: 2013Q4

REPORT INFORMATION
  Report Type: Spontaneous
  Country: US (occurrence: US)
  Receive Date: 20130924
  Receipt Date: 20131009
  Transmission Date: 20140711
  Serious: Yes (Hospitalization)
  Sender: FDA-Public Use
  Company Number: US-GLAXOSMITHKLINE-A1042527A

PATIENT
  Sex: Female

DRUGS (1)
  1. ADVAIR [Suspect]
     Indication: ASTHMA
     Route: 055
     Dates: start: 20130918

REACTIONS (1)
  - Hospitalisation [Unknown]
